FAERS Safety Report 11558588 (Version 1)
Quarter: 2015Q3

REPORT INFORMATION
  Report Type: Report from Study
  Country: CO (occurrence: CO)
  Receive Date: 20150928
  Receipt Date: 20150928
  Transmission Date: 20151125
  Serious: Yes (Other)
  Sender: FDA-Public Use
  Company Number: CO-ABBVIE-15K-036-1469016-00

PATIENT
  Age: 51 Year
  Sex: Male
  Weight: 73 kg

DRUGS (1)
  1. HUMIRA [Suspect]
     Active Substance: ADALIMUMAB
     Indication: PSORIASIS
     Route: 058
     Dates: start: 20100920, end: 20150728

REACTIONS (6)
  - Flatulence [Recovering/Resolving]
  - Tuberculin test positive [Recovering/Resolving]
  - Abdominal distension [Recovering/Resolving]
  - Chronic gastritis [Recovering/Resolving]
  - Abdominal pain upper [Recovering/Resolving]
  - Diarrhoea haemorrhagic [Recovering/Resolving]

NARRATIVE: CASE EVENT DATE: 20150713
